FAERS Safety Report 4719151-7 (Version None)
Quarter: 2005Q3

REPORT INFORMATION
  Report Type: 
  Country: None (occurrence: None)
  Receive Date: 20050720
  Receipt Date: 20050629
  Transmission Date: 20060218
  Serious: No
  Sender: FDA-Public Use
  Company Number: JP-MERCK-0507USA00220

PATIENT
  Age: 38 Year
  Sex: Female

DRUGS (3)
  1. PANSPORIN [Suspect]
     Indication: INFECTION PROPHYLAXIS
     Route: 042
     Dates: start: 20050623, end: 20050624
  2. LOXONIN [Suspect]
     Indication: INFECTION PROPHYLAXIS
     Route: 048
     Dates: start: 20050623, end: 20050624
  3. PRIMAXIN [Suspect]
     Indication: INFECTION PROPHYLAXIS
     Route: 041
     Dates: start: 20050623, end: 20050624

REACTIONS (1)
  - DRUG ERUPTION [None]
